FAERS Safety Report 4325694-0 (Version None)
Quarter: 2004Q1

REPORT INFORMATION
  Report Type: 
  Country: None (occurrence: None)
  Receive Date: 20040324
  Receipt Date: 20040309
  Transmission Date: 20041129
  Serious: Yes (Hospitalization)
  Sender: FDA-Public Use
  Company Number: S04-SWE-01165-01

PATIENT
  Age: 36 Year
  Sex: Male

DRUGS (3)
  1. CIPRAMIL (CITALOPRAM HYDROBROMIDE) [Suspect]
     Indication: DEPRESSION
     Dates: start: 20021101, end: 20030107
  2. FLUOXETINE [Suspect]
     Dosage: 20 MG QD PO
     Route: 048
     Dates: start: 20030108, end: 20030125
  3. XANOR (ALPRAZOLAM) [Concomitant]

REACTIONS (5)
  - DIZZINESS [None]
  - DRUG INEFFECTIVE [None]
  - HEADACHE [None]
  - NAUSEA [None]
  - SUBDURAL HAEMATOMA [None]
